FAERS Safety Report 5045178-4 (Version None)
Quarter: 2006Q3

REPORT INFORMATION
  Report Type: 
  Country: None (occurrence: None)
  Receive Date: 20060705
  Receipt Date: 20060626
  Transmission Date: 20061208
  Serious: Yes (Hospitalization, Other)
  Sender: FDA-Public Use
  Company Number: CLOF-10147

PATIENT
  Age: 78 Year
  Sex: Male

DRUGS (22)
  1. CLOFARABINE [Suspect]
     Indication: ACUTE MYELOID LEUKAEMIA
     Dosage: 53 MG QD X 5 IA
     Route: 013
     Dates: start: 20051003, end: 20051007
  2. CYTARABINE [Suspect]
     Indication: ACUTE MYELOID LEUKAEMIA
     Dosage: 25 MG QD IA
     Route: 013
     Dates: start: 20051003, end: 20051016
  3. CIPRO [Concomitant]
  4. VORICONAZOLE [Concomitant]
  5. VALTREX [Concomitant]
  6. TOPROL-XL [Concomitant]
  7. RAMIPRIL [Concomitant]
  8. HALDOL [Concomitant]
  9. MAGNESIUM PROTEIN COMPLEX [Concomitant]
  10. PROSCAR [Concomitant]
  11. SYNTHROID [Concomitant]
  12. K-DUR 10 [Concomitant]
  13. HYDRALAZINE HCL [Concomitant]
  14. IMDUR [Concomitant]
  15. LASIX [Concomitant]
  16. CANCIDAS [Concomitant]
  17. PROTONIX [Concomitant]
  18. VALCYTE [Concomitant]
  19. SPIRONOLACTONE [Concomitant]
  20. NEUPOGEN [Concomitant]
  21. DARVON [Concomitant]
  22. RESTORIL [Concomitant]

REACTIONS (4)
  - CARDIAC FAILURE CONGESTIVE [None]
  - FEBRILE NEUTROPENIA [None]
  - THROMBOCYTOPENIA [None]
  - VENTRICULAR DYSFUNCTION [None]
